FAERS Safety Report 9344406 (Version 1)
Quarter: 2013Q2

REPORT INFORMATION
  Report Type: Report from Study
  Country: US (occurrence: US)
  Receive Date: 20130612
  Receipt Date: 20130612
  Transmission Date: 20140414
  Serious: Yes (Hospitalization)
  Sender: FDA-Public Use
  Company Number: US-JNJFOC-20130604128

PATIENT
  Age: 16 Year
  Sex: Male
  Weight: 86 kg

DRUGS (3)
  1. REMICADE [Suspect]
     Indication: CROHN^S DISEASE
     Route: 042
     Dates: start: 20101004, end: 20110801
  2. HUMIRA [Concomitant]
     Route: 065
     Dates: start: 20110804
  3. HUMIRA [Concomitant]
     Route: 065
     Dates: start: 20130531

REACTIONS (1)
  - Crohn^s disease [Recovered/Resolved]
